FAERS Safety Report 6038014-0 (Version None)
Quarter: 2009Q1

REPORT INFORMATION
  Report Type: 
  Country: None (occurrence: None)
  Receive Date: 20090113
  Receipt Date: 20090113
  Transmission Date: 20090719
  Serious: Yes (Disabling)
  Sender: FDA-Public Use
  Company Number: None

PATIENT
  Age: 18 Year
  Sex: Female
  Weight: 63.5036 kg

DRUGS (1)
  1. NEURONTIN [Suspect]
     Indication: BASILAR MIGRAINE
     Dosage: 900MG 2 X DAY
     Dates: start: 20080309, end: 20081230

REACTIONS (1)
  - DENTAL CARIES [None]
